FAERS Safety Report 7805650-8 (Version None)
Quarter: 2011Q4

REPORT INFORMATION
  Report Type: 
  Country: None (occurrence: None)
  Receive Date: 20111010
  Receipt Date: 20110929
  Transmission Date: 20120403
  Serious: Yes (Other)
  Sender: FDA-Public Use
  Company Number: JP-BRISTOL-MYERS SQUIBB COMPANY-16125577

PATIENT
  Age: 1 Day

DRUGS (3)
  1. BLEOMYCIN SULFATE [Suspect]
     Route: 064
  2. VEPESID [Suspect]
     Route: 064
  3. CISPLATIN [Suspect]
     Route: 064

REACTIONS (5)
  - RESPIRATORY DISTRESS [None]
  - CAESAREAN SECTION [None]
  - MATERNAL DRUGS AFFECTING FOETUS [None]
  - PREMATURE BABY [None]
  - NEONATAL RESPIRATORY DISTRESS SYNDROME [None]
